FAERS Safety Report 8880591 (Version 1)
Quarter: 2012Q4

REPORT INFORMATION
  Report Type: 
  Country: FR (occurrence: FR)
  Receive Date: 20121031
  Receipt Date: 20121031
  Transmission Date: 20130627
  Serious: Yes (Life-Threatening, Hospitalization)
  Sender: FDA-Public Use
  Company Number: FR-ASTRAZENECA-2012SE82416

PATIENT
  Age: 63 Year
  Sex: Male

DRUGS (4)
  1. DIPRIVAN [Suspect]
     Route: 042
     Dates: start: 20090907, end: 20090907
  2. ULTIVA [Suspect]
     Dosage: 0.025 to 0.05 microgram/Kg, Once/Single administration
     Route: 042
     Dates: start: 20090907, end: 20090907
  3. NIMBEX [Suspect]
     Route: 042
     Dates: start: 20090907, end: 20090907
  4. SEVOFLURANE [Concomitant]
     Route: 055
     Dates: start: 20090907, end: 20090907

REACTIONS (3)
  - Hypovolaemia [Recovered/Resolved]
  - Anaphylactoid reaction [Recovered/Resolved]
  - Bronchospasm [Recovered/Resolved]
